FAERS Safety Report 18938220 (Version 3)
Quarter: 2022Q3

REPORT INFORMATION
  Report Type: Spontaneous
  Country: JP (occurrence: JP)
  Receive Date: 20210225
  Receipt Date: 20220714
  Transmission Date: 20221027
  Serious: No
  Sender: FDA-Public Use
  Company Number: JP-GSKNCCC-CASE-01149420_AE-40844

PATIENT

DRUGS (3)
  1. LAMICTAL [Suspect]
     Active Substance: LAMOTRIGINE
     Indication: Epilepsy
     Dosage: 5 MG, BID
     Route: 050
     Dates: start: 20090706
  2. LAMICTAL [Suspect]
     Active Substance: LAMOTRIGINE
     Dosage: 25 MG, TID
     Route: 050
     Dates: end: 202101
  3. LAMICTAL [Suspect]
     Active Substance: LAMOTRIGINE
     Dosage: 30MG TWICE/DAY, 25 MG ONCE/DAY, TID
     Route: 050
     Dates: start: 202101

REACTIONS (2)
  - Product use issue [Unknown]
  - Off label use [Unknown]
